FAERS Safety Report 17728085 (Version 1)
Quarter: 2020Q2

REPORT INFORMATION
  Report Type: Report from Study
  Country: US (occurrence: US)
  Receive Date: 20200430
  Receipt Date: 20200430
  Transmission Date: 20200714
  Serious: Yes (Death, Hospitalization)
  Sender: FDA-Public Use
  Company Number: US-MYLANLABS-2020M1041403

PATIENT
  Age: 60 Year
  Sex: Female

DRUGS (3)
  1. GEMCITABINE. [Suspect]
     Active Substance: GEMCITABINE
     Indication: HODGKIN^S DISEASE
     Dosage: ON DAY 1
     Route: 042
  2. PEGFILGRASTIM [Concomitant]
     Active Substance: PEGFILGRASTIM
     Indication: PRODUCT USED FOR UNKNOWN INDICATION
     Dosage: ON DAY 3 OF EACH CYCLE
     Route: 065
  3. BENDAMUSTINE [Suspect]
     Active Substance: BENDAMUSTINE
     Indication: HODGKIN^S DISEASE
     Dosage: AT ESCALATING DOSES ON DAY 1 AND DAY 2
     Route: 042

REACTIONS (4)
  - Pneumonia [Fatal]
  - Cardiac failure acute [Unknown]
  - Pulmonary embolism [Fatal]
  - Respiratory failure [Fatal]
